FAERS Safety Report 10061638 (Version 3)
Quarter: 2014Q2

REPORT INFORMATION
  Report Type: Spontaneous
  Country: FR (occurrence: None)
  Receive Date: 20140403
  Receipt Date: 20140422
  Transmission Date: 20141212
  Serious: Yes (Hospitalization)
  Sender: FDA-Public Use
  Company Number: SP07657

PATIENT
  Age: 35 Year
  Sex: Female

DRUGS (1)
  1. OSMOPREP [Suspect]
     Indication: BOWEL PREPARATION
     Dosage: 32 TABLETS, SPLIT DOSE, ORAL
     Route: 048
     Dates: start: 20140318

REACTIONS (3)
  - Gastric ulcer [None]
  - Large intestine polyp [None]
  - Enteritis [None]
